FAERS Safety Report 10864996 (Version 1)
Quarter: 2015Q1

REPORT INFORMATION
  Report Type: Report from Study
  Country: US (occurrence: US)
  Receive Date: 20150224
  Receipt Date: 20150224
  Transmission Date: 20150721
  Serious: No
  Sender: FDA-Public Use
  Company Number: US-MYLANLABS-2014S1005248

PATIENT
  Sex: Male

DRUGS (6)
  1. AMNESTEEM [Suspect]
     Active Substance: ISOTRETINOIN
     Dosage: 10 MG,QD
     Route: 048
     Dates: start: 20130801, end: 201402
  2. AMNESTEEM [Suspect]
     Active Substance: ISOTRETINOIN
     Indication: SQUAMOUS CELL CARCINOMA
  3. AMNESTEEM [Suspect]
     Active Substance: ISOTRETINOIN
     Dosage: 20 MG,QD
     Route: 048
     Dates: start: 20131210
  4. AMNESTEEM [Suspect]
     Active Substance: ISOTRETINOIN
     Indication: ACNE
  5. AMNESTEEM [Suspect]
     Active Substance: ISOTRETINOIN
     Indication: ACNE
  6. AMNESTEEM [Suspect]
     Active Substance: ISOTRETINOIN
     Indication: SQUAMOUS CELL CARCINOMA

REACTIONS (1)
  - Myalgia [Not Recovered/Not Resolved]
